FAERS Safety Report 10482360 (Version 7)
Quarter: 2015Q3

REPORT INFORMATION
  Report Type: Report from Study
  Country: US (occurrence: US)
  Receive Date: 20140929
  Receipt Date: 20150715
  Transmission Date: 20151125
  Serious: Yes (Hospitalization)
  Sender: FDA-Public Use
  Company Number: US-SA-2014SA104655

PATIENT
  Age: 46 Year
  Sex: Female

DRUGS (3)
  1. AUBAGIO [Suspect]
     Active Substance: TERIFLUNOMIDE
     Indication: MULTIPLE SCLEROSIS
     Route: 048
     Dates: start: 20140728
  2. MUSCLE RELAXANTS [Concomitant]
     Active Substance: UNSPECIFIED INGREDIENT
  3. ANALGESICS [Concomitant]
     Active Substance: UNSPECIFIED INGREDIENT

REACTIONS (22)
  - Breath sounds abnormal [Unknown]
  - Alopecia [Not Recovered/Not Resolved]
  - Lung disorder [Recovering/Resolving]
  - Blood potassium decreased [Not Recovered/Not Resolved]
  - Nausea [Not Recovered/Not Resolved]
  - Weight decreased [Not Recovered/Not Resolved]
  - Respiratory rate decreased [Unknown]
  - Sinus disorder [Unknown]
  - White blood cell count increased [Not Recovered/Not Resolved]
  - Vitamin D decreased [Not Recovered/Not Resolved]
  - Hepatic enzyme increased [Not Recovered/Not Resolved]
  - Diarrhoea [Not Recovered/Not Resolved]
  - Contusion [Not Recovered/Not Resolved]
  - Constipation [Unknown]
  - Unevaluable event [Not Recovered/Not Resolved]
  - Pneumonia [Unknown]
  - Chronic obstructive pulmonary disease [Recovering/Resolving]
  - Pain in extremity [Not Recovered/Not Resolved]
  - Dyspnoea [Recovering/Resolving]
  - Sinus operation [Unknown]
  - Bronchitis [Recovering/Resolving]
  - Dysgeusia [Unknown]

NARRATIVE: CASE EVENT DATE: 20140917
